FAERS Safety Report 7054175-9 (Version None)
Quarter: 2010Q4

REPORT INFORMATION
  Report Type: 
  Country: None (occurrence: None)
  Receive Date: 20101015
  Receipt Date: 20101006
  Transmission Date: 20110411
  Serious: Yes (Life-Threatening)
  Sender: FDA-Public Use
  Company Number: URSO-2010-096

PATIENT
  Sex: Male

DRUGS (5)
  1. URSODEOXYCHOLIC ACID [Suspect]
     Indication: HERPES VIRUS INFECTION
     Dosage: 300 MG ORAL
     Route: 048
     Dates: start: 20100620, end: 20100720
  2. RISPERDAL [Suspect]
     Indication: SCHIZOPHRENIA
     Dosage: 1 MG ORAL
     Route: 048
     Dates: start: 20100506, end: 20100720
  3. EVAMYL (LORMETAZEPAM) [Suspect]
     Indication: SCHIZOPHRENIA
     Dosage: 1 MG ORAL
     Route: 048
     Dates: start: 20100301, end: 20100720
  4. ALDACTONE [Suspect]
     Indication: ASCITES
     Dosage: 25 MG ORAL
     Route: 048
     Dates: start: 20100525, end: 20100720
  5. ZANTAC [Suspect]
     Indication: GASTRIC ULCER
     Dosage: 300 MG ORAL
     Route: 048
     Dates: start: 20100602, end: 20100720

REACTIONS (9)
  - ANAEMIA [None]
  - BLOOD ALBUMIN DECREASED [None]
  - CHOLESTASIS [None]
  - GASTRIC ULCER [None]
  - HEPATIC NECROSIS [None]
  - HEPATITIS ACUTE [None]
  - HEPATITIS VIRAL [None]
  - JAUNDICE CHOLESTATIC [None]
  - MELAENA [None]
